FAERS Safety Report 7040034-4 (Version None)
Quarter: 2010Q3

REPORT INFORMATION
  Report Type: 
  Country: None (occurrence: None)
  Receive Date: 20100909
  Receipt Date: 20100909
  Transmission Date: 20110219
  Serious: Yes (Hospitalization, Other)
  Sender: FDA-Public Use
  Company Number: 201005898

PATIENT
  Sex: Female
  Weight: 72.1219 kg

DRUGS (11)
  1. VIVAGLOBIN [Suspect]
     Indication: IMMUNODEFICIENCY COMMON VARIABLE
     Dosage: 56 ML, 56 ML WEEKLY IN 4 SITES OVER 1 HOUR SUBCUATANEOUS
     Route: 058
     Dates: start: 20090120
  2. VIVAGLOBIN [Suspect]
  3. VIVAGLOBIN [Suspect]
  4. ZANTAC [Concomitant]
  5. ASPIRIN [Concomitant]
  6. FLAXSEED (LINUM USITATISSIMUM SEED OIL) [Concomitant]
  7. VITAMIN D [Concomitant]
  8. ZETIA [Concomitant]
  9. SYNTHROID [Concomitant]
  10. PRILOSEC (OMEPRAZOLE) [Concomitant]
  11. MOMETASONE FUROATE [Concomitant]

REACTIONS (7)
  - BLOOD PRESSURE DECREASED [None]
  - CEREBRAL INFARCTION [None]
  - CEREBROVASCULAR ACCIDENT [None]
  - DEHYDRATION [None]
  - HEADACHE [None]
  - MIGRAINE [None]
  - NAUSEA [None]
